FAERS Safety Report 4578808-1 (Version None)
Quarter: 2005Q1

REPORT INFORMATION
  Report Type: 
  Country: None (occurrence: None)
  Receive Date: 20050211
  Receipt Date: 20050202
  Transmission Date: 20050727
  Serious: Yes (Hospitalization, Other)
  Sender: FDA-Public Use
  Company Number: US-JNJFOC-20041100035

PATIENT
  Age: 51 Year
  Sex: Female

DRUGS (2)
  1. HALDOL DECANOATE [Suspect]
  2. HALDOL DECANOATE [Suspect]
     Indication: SCHIZOPHRENIA
     Dosage: 150 - 300 MG

REACTIONS (6)
  - ARTHRITIS [None]
  - DIABETES MELLITUS [None]
  - HAIR GROWTH ABNORMAL [None]
  - HYPERTENSION [None]
  - OEDEMA PERIPHERAL [None]
  - VISION BLURRED [None]
